FAERS Safety Report 7012859-2 (Version None)
Quarter: 2010Q3

REPORT INFORMATION
  Report Type: 
  Country: None (occurrence: None)
  Receive Date: 20100924
  Receipt Date: 20100909
  Transmission Date: 20110219
  Serious: Yes (Other)
  Sender: FDA-Public Use
  Company Number: PT-AMGEN-KDL437192

PATIENT
  Sex: Female

DRUGS (5)
  1. NEULASTA [Suspect]
     Indication: CHEMOTHERAPY
     Route: 058
     Dates: start: 20100814, end: 20100814
  2. PLATINOL [Concomitant]
     Dates: start: 20100809, end: 20100813
  3. ETOPOSIDE [Concomitant]
     Dates: start: 20100809, end: 20100813
  4. SOLU-MEDROL [Concomitant]
     Dates: start: 20100809, end: 20100813
  5. ARA-C [Concomitant]
     Dates: start: 20100809, end: 20100813

REACTIONS (1)
  - NEUTROPENIA [None]
